FAERS Safety Report 7573208-4 (Version None)
Quarter: 2011Q2

REPORT INFORMATION
  Report Type: 
  Country: None (occurrence: None)
  Receive Date: 20110627
  Receipt Date: 20110624
  Transmission Date: 20111010
  Serious: Yes (Other)
  Sender: FDA-Public Use
  Company Number: US-PFIZER INC-2011141202

PATIENT
  Sex: Male
  Weight: 93.9 kg

DRUGS (9)
  1. LEVOTHYROXINE [Concomitant]
     Indication: THYROID DISORDER
     Dosage: UNK
     Route: 048
  2. XANAX [Concomitant]
     Indication: NERVOUS SYSTEM DISORDER
     Dosage: 1 MG, 2X/DAY
     Route: 048
  3. HYDROCODONE [Concomitant]
     Indication: FIBROMYALGIA
     Dosage: 750 MG, 4X/DAY
     Route: 048
  4. GABAPENTIN [Concomitant]
     Indication: SYSTEMIC LUPUS ERYTHEMATOSUS
     Dosage: 300 MG, 4X/DAY
     Route: 048
  5. FLEXERIL [Concomitant]
     Indication: MUSCLE RELAXANT THERAPY
     Dosage: 10 MG, 2X/DAY
     Route: 048
  6. CLONAZEPAM [Concomitant]
     Indication: SLEEP DISORDER
     Dosage: 1 MG, DAILY
     Route: 048
  7. METHOTREXATE [Concomitant]
     Indication: IMMUNOSUPPRESSION
     Dosage: 15 MG, WEEKLY
     Route: 048
  8. CELEBREX [Suspect]
     Indication: PAIN
     Dosage: 200 MG, DAILY
     Route: 048
     Dates: start: 20050101
  9. FLUCONAZOLE [Concomitant]
     Dosage: 200 MG, DAILY
     Route: 048

REACTIONS (1)
  - OSTEOPOROSIS [None]
